FAERS Safety Report 8400088 (Version 3)
Quarter: 2013Q1

REPORT INFORMATION
  Report Type: Report from Study
  Country: JP (occurrence: JP)
  Receive Date: 20120210
  Receipt Date: 20130306
  Transmission Date: 20140127
  Serious: Yes (Hospitalization)
  Sender: FDA-Public Use
  Company Number: JP-ROCHE-764889

PATIENT
  Age: 54 Year
  Sex: Male

DRUGS (31)
  1. TOCILIZUMAB [Suspect]
     Indication: RHEUMATOID ARTHRITIS
     Route: 041
     Dates: start: 20090417, end: 20090417
  2. TOCILIZUMAB [Suspect]
     Route: 041
     Dates: start: 20090515, end: 20090515
  3. TOCILIZUMAB [Suspect]
     Route: 041
     Dates: start: 20090703, end: 20090703
  4. TOCILIZUMAB [Suspect]
     Route: 041
     Dates: start: 20090731, end: 20090731
  5. TOCILIZUMAB [Suspect]
     Route: 041
     Dates: start: 20090904, end: 20090904
  6. TOCILIZUMAB [Suspect]
     Route: 041
     Dates: start: 20091002, end: 20091002
  7. TOCILIZUMAB [Suspect]
     Route: 041
     Dates: start: 20091211, end: 20091211
  8. TOCILIZUMAB [Suspect]
     Route: 041
     Dates: start: 20100108, end: 20100108
  9. TOCILIZUMAB [Suspect]
     Route: 041
     Dates: start: 20100212, end: 20100212
  10. TOCILIZUMAB [Suspect]
     Route: 041
     Dates: start: 20100402, end: 20100402
  11. TOCILIZUMAB [Suspect]
     Route: 041
     Dates: start: 20100507, end: 20100507
  12. TOCILIZUMAB [Suspect]
     Route: 041
     Dates: start: 20100622, end: 20100622
  13. TOCILIZUMAB [Suspect]
     Route: 041
     Dates: start: 20100723, end: 20100723
  14. TOCILIZUMAB [Suspect]
     Route: 041
     Dates: start: 20100924, end: 20100924
  15. TOCILIZUMAB [Suspect]
     Route: 041
     Dates: start: 20101102, end: 20101102
  16. TOCILIZUMAB [Suspect]
     Route: 041
     Dates: start: 20110107, end: 20110107
  17. TOCILIZUMAB [Suspect]
     Route: 041
     Dates: start: 20110224, end: 20110224
  18. PREDNISOLONE [Suspect]
     Indication: RHEUMATOID ARTHRITIS
     Route: 048
     Dates: end: 20090730
  19. PREDNISOLONE [Suspect]
     Route: 048
     Dates: start: 20090731
  20. METHOTREXATE SODIUM [Suspect]
     Indication: RHEUMATOID ARTHRITIS
     Route: 048
  21. ISCOTIN [Concomitant]
     Indication: ANTIBIOTIC PROPHYLAXIS
     Route: 048
  22. FOLIAMIN [Concomitant]
     Indication: PROPHYLAXIS
     Route: 048
  23. MUCOSTA [Concomitant]
     Indication: PROPHYLAXIS
     Route: 048
  24. MUCOSTA [Concomitant]
     Route: 048
  25. UNIPHYL [Concomitant]
     Indication: ASTHMA
     Route: 048
  26. LOXONIN [Concomitant]
     Indication: RHEUMATOID ARTHRITIS
     Route: 048
  27. LOXONIN [Concomitant]
     Route: 048
  28. PYDOXAL [Concomitant]
     Indication: PROPHYLAXIS
     Route: 048
  29. FASTIC [Concomitant]
     Indication: DIABETES MELLITUS
     Route: 048
  30. TAKEPRON [Concomitant]
     Indication: PROPHYLAXIS
     Route: 048
  31. PULMICORT [Concomitant]
     Route: 055
     Dates: start: 20110416

REACTIONS (1)
  - Atypical pneumonia [Recovered/Resolved]
